FAERS Safety Report 8439314-7 (Version None)
Quarter: 2012Q2

REPORT INFORMATION
  Report Type: 
  Country: None (occurrence: None)
  Receive Date: 20120615
  Receipt Date: 20120613
  Transmission Date: 20120825
  Serious: Yes (Other)
  Sender: FDA-Public Use
  Company Number: PHEH2012US011329

PATIENT
  Sex: Male

DRUGS (13)
  1. NEORAL [Suspect]
     Indication: GLOMERULONEPHRITIS MEMBRANOUS
     Dosage: 150 MG, BID
     Route: 048
     Dates: start: 20111206
  2. HYDRALAZINE HYDROCHLORIDE [Concomitant]
     Dosage: 25 MG, TID
  3. ACCUPRIL [Concomitant]
     Dosage: 20 MG, UNK
     Route: 048
  4. PROTONIX [Concomitant]
     Dosage: 40 MG, BID
  5. ERGOCALCIFEROL [Concomitant]
     Dosage: 50000 IU, UNK
     Route: 048
     Dates: start: 20111001
  6. LASIX [Concomitant]
     Dosage: 40 MG, BID
  7. FERROUS SULFATE TAB [Concomitant]
     Dosage: 325 MG, BID
  8. NEORAL [Suspect]
     Indication: NEPHROSCLEROSIS
     Dosage: 125 MG, BID
     Route: 048
     Dates: start: 20111230
  9. LABETALOL HYDROCHLORIDE [Concomitant]
     Dosage: 200 MG, BID
     Route: 048
  10. SIMVASTATIN [Concomitant]
     Dosage: 80 MG, UNK
     Route: 048
  11. PHOSPHORUS [Concomitant]
     Dosage: 667 MG, TID
  12. NIFEDIPINE [Concomitant]
     Dosage: 120 MG, ONCE/SINGLE
     Route: 048
  13. NABUMETONE [Concomitant]
     Dosage: 650 MG, UNK
     Route: 048
     Dates: start: 20120201

REACTIONS (3)
  - DISEASE PROGRESSION [None]
  - RENAL FAILURE CHRONIC [None]
  - DRUG INEFFECTIVE [None]
